FAERS Safety Report 7642949-2 (Version None)
Quarter: 2011Q3

REPORT INFORMATION
  Report Type: 
  Country: None (occurrence: None)
  Receive Date: 20110728
  Receipt Date: 20101213
  Transmission Date: 20111222
  Serious: Yes (Disabling, Other)
  Sender: FDA-Public Use
  Company Number: IE-BAYER-201042809GPV

PATIENT
  Age: 65 Year
  Sex: Female

DRUGS (5)
  1. GADOPENTETATE DIMEGLUMINE [Suspect]
  2. GADOPENTETATE DIMEGLUMINE [Suspect]
  3. GADOPENTETATE DIMEGLUMINE [Suspect]
     Dosage: CUMULATIVE DOSE OF 50 MMOL OF GADOLINIUM CHELATE
  4. GADOPENTETATE DIMEGLUMINE [Suspect]
  5. GADOPENTETATE DIMEGLUMINE [Suspect]

REACTIONS (6)
  - PAIN [None]
  - SKIN PLAQUE [None]
  - MOBILITY DECREASED [None]
  - NEPHROGENIC SYSTEMIC FIBROSIS [None]
  - JOINT RANGE OF MOTION DECREASED [None]
  - ARTHRALGIA [None]
